FAERS Safety Report 4368328-1 (Version None)
Quarter: 2004Q2

REPORT INFORMATION
  Report Type: 
  Country: None (occurrence: None)
  Receive Date: 20040527
  Receipt Date: 20040514
  Transmission Date: 20050107
  Serious: Yes (Life-Threatening, Hospitalization)
  Sender: FDA-Public Use
  Company Number: HQWYE894514MAY04

PATIENT
  Sex: Male

DRUGS (3)
  1. PANTOZOL (PANTOPRAZOLE, TABLET, DELAYED RELEASE) [Suspect]
     Indication: GASTROENTERITIS HELICOBACTER
     Dosage: 40 MG 2X PER 1 DAY
     Route: 048
     Dates: start: 20040430, end: 20040506
  2. AMOXICILLIN [Suspect]
     Indication: GASTROENTERITIS HELICOBACTER
     Dosage: 1000 MG 2X PER 1 DAY
     Route: 048
     Dates: start: 20040430, end: 20040506
  3. CLARITHROMYCIN [Suspect]
     Indication: GASTROENTERITIS HELICOBACTER
     Dosage: 500 MG 2X PER 1 DAY
     Route: 048
     Dates: start: 20040430, end: 20040506

REACTIONS (3)
  - DEPRESSION SUICIDAL [None]
  - GENERAL PHYSICAL CONDITION ABNORMAL [None]
  - TREMOR [None]
